FAERS Safety Report 16712637 (Version 2)
Quarter: 2019Q3

REPORT INFORMATION
  Report Type: Report from Study
  Country: US (occurrence: US)
  Receive Date: 20190816
  Receipt Date: 20190827
  Transmission Date: 20191004
  Serious: Yes (Hospitalization)
  Sender: FDA-Public Use
  Company Number: PHHO2019US008217

PATIENT
  Age: 64 Year
  Sex: Male

DRUGS (6)
  1. ASPIRIN. [Concomitant]
     Active Substance: ASPIRIN
     Indication: PRODUCT USED FOR UNKNOWN INDICATION
     Dosage: 81 MG, QD
     Route: 048
     Dates: start: 200305
  2. IRBESARTAN. [Concomitant]
     Active Substance: IRBESARTAN
     Indication: PRODUCT USED FOR UNKNOWN INDICATION
     Dosage: 150 MG, QD
     Route: 048
     Dates: start: 200305
  3. PREVACID [Concomitant]
     Active Substance: LANSOPRAZOLE
     Indication: PRODUCT USED FOR UNKNOWN INDICATION
     Dosage: 30 MG, QD
     Route: 048
     Dates: start: 200905
  4. RELAFEN [Concomitant]
     Active Substance: NABUMETONE
     Indication: PRODUCT USED FOR UNKNOWN INDICATION
     Dosage: 750 MG, QD
     Route: 048
     Dates: start: 200905
  5. SORAFENIB [Suspect]
     Active Substance: SORAFENIB
     Indication: GLIOBLASTOMA
     Dosage: 400 MG, BID (7 DAYS ON AND 7 DAYS OFF)
     Route: 048
     Dates: start: 20190614, end: 20190730
  6. AFINITOR [Suspect]
     Active Substance: EVEROLIMUS
     Indication: GLIOBLASTOMA
     Dosage: 5 MG, QD
     Route: 048
     Dates: start: 20190614, end: 20190808

REACTIONS (3)
  - Memory impairment [Unknown]
  - Hemiparesis [Unknown]
  - Hypotension [Unknown]

NARRATIVE: CASE EVENT DATE: 201908
